FAERS Safety Report 10879387 (Version 2)
Quarter: 2015Q1

REPORT INFORMATION
  Report Type: Spontaneous
  Country: BF (occurrence: BF)
  Receive Date: 20150302
  Receipt Date: 20150316
  Transmission Date: 20150721
  Serious: Yes (Hospitalization, Other)
  Sender: FDA-Public Use
  Company Number: BF-PFIZER INC-2015074321

PATIENT
  Age: 35 Year
  Sex: Female

DRUGS (8)
  1. NADOLOL. [Suspect]
     Active Substance: NADOLOL
     Indication: VENTRICULAR TACHYCARDIA
     Dosage: 10 MG, 2X/DAY
     Route: 065
  2. ATENOLOL. [Suspect]
     Active Substance: ATENOLOL
     Indication: VENTRICULAR TACHYCARDIA
     Dosage: 25 MG, DAILY
     Route: 065
  3. ACEBUTOLOL HYDROCHLORIDE. [Suspect]
     Active Substance: ACEBUTOLOL HYDROCHLORIDE
     Dosage: 200 MG, UNK
     Route: 065
  4. ATENOLOL. [Suspect]
     Active Substance: ATENOLOL
     Dosage: 50 MG, DAILY
     Route: 065
  5. ATENOLOL. [Suspect]
     Active Substance: ATENOLOL
     Dosage: 100 MG, DAILY
     Route: 065
  6. ENOXAPARIN SODIUM. [Suspect]
     Active Substance: ENOXAPARIN SODIUM
     Indication: THROMBOSIS PROPHYLAXIS
     Route: 065
  7. AMIODARONE HCL [Suspect]
     Active Substance: AMIODARONE HYDROCHLORIDE
     Indication: VENTRICULAR TACHYCARDIA
     Dosage: 200 MG, DAILY
     Route: 065
     Dates: start: 20111123
  8. FLECAINIDE [Suspect]
     Active Substance: FLECAINIDE
     Indication: VENTRICULAR TACHYCARDIA
     Dosage: 50 MG, 3X/DAY
     Route: 065

REACTIONS (7)
  - Chest discomfort [Recovered/Resolved]
  - Palpitations [Recovering/Resolving]
  - Presyncope [Recovering/Resolving]
  - Discomfort [Recovering/Resolving]
  - Dizziness [Recovering/Resolving]
  - Ventricular tachycardia [Recovering/Resolving]
  - Anxiety [Recovering/Resolving]

NARRATIVE: CASE EVENT DATE: 20120125
